FAERS Safety Report 7647706-9 (Version None)
Quarter: 2011Q3

REPORT INFORMATION
  Report Type: 
  Country: None (occurrence: None)
  Receive Date: 20110801
  Receipt Date: 20110801
  Transmission Date: 20111222
  Serious: Yes (Hospitalization, Disabling)
  Sender: FDA-Public Use
  Company Number: None

PATIENT
  Age: 64 Year
  Sex: Female
  Weight: 63.502 kg

DRUGS (2)
  1. BONIVA [Concomitant]
     Indication: OSTEOPENIA
     Dosage: 280 MG
     Route: 048
     Dates: start: 20030801, end: 20090831
  2. FOSAMAX [Suspect]
     Indication: OSTEOPENIA
     Dosage: 70 MG
     Route: 048
     Dates: start: 19980601, end: 20030731

REACTIONS (1)
  - FEMUR FRACTURE [None]
